FAERS Safety Report 5703641-4 (Version None)
Quarter: 2008Q2

REPORT INFORMATION
  Report Type: 
  Country: None (occurrence: None)
  Receive Date: 20080411
  Receipt Date: 20080401
  Transmission Date: 20081010
  Serious: No
  Sender: FDA-Public Use
  Company Number: GB-PFIZER INC-2008028422

PATIENT
  Sex: Female

DRUGS (6)
  1. GABAPENTIN [Suspect]
     Indication: NEURALGIA
  2. PETHIDINE [Suspect]
     Indication: PAIN
  3. HYPERICUM PERFORATUM [Suspect]
  4. TRAMADOL HCL [Suspect]
     Indication: PAIN
  5. PARACETAMOL [Concomitant]
     Route: 042
  6. CONTRACEPTIVE, UNSPECIFIED [Concomitant]
     Route: 048

REACTIONS (1)
  - NO ADVERSE EVENT [None]
